FAERS Safety Report 24244562 (Version 2)
Quarter: 2024Q3

REPORT INFORMATION
  Report Type: Spontaneous
  Country: US (occurrence: US)
  Receive Date: 20240823
  Receipt Date: 20240903
  Transmission Date: 20241017
  Serious: No
  Sender: DR REDDYS
  Company Number: US-BMS-IMIDS-REMS_SI-11847364

PATIENT
  Age: 56 Year
  Sex: Female

DRUGS (1)
  1. LENALIDOMIDE [Suspect]
     Active Substance: LENALIDOMIDE
     Indication: Plasma cell myeloma
     Dates: start: 20240705, end: 20240815

REACTIONS (5)
  - Illness [Recovered/Resolved]
  - Adverse drug reaction [Recovered/Resolved]
  - Nausea [Unknown]
  - Diarrhoea [Unknown]
  - Abdominal pain [Unknown]
